FAERS Safety Report 19307524 (Version 1)
Quarter: 2021Q2

REPORT INFORMATION
  Report Type: Spontaneous
  Country: US (occurrence: US)
  Receive Date: 20210526
  Receipt Date: 20210526
  Transmission Date: 20210717
  Serious: Yes (Other)
  Sender: FDA-Public Use
  Company Number: US-REGENERON PHARMACEUTICALS, INC.-2021-51727

PATIENT

DRUGS (1)
  1. PRALUENT [Suspect]
     Active Substance: ALIROCUMAB
     Indication: HYPERCHOLESTEROLAEMIA
     Dosage: 150 MG, Q2W
     Route: 058

REACTIONS (4)
  - Skin cancer [Unknown]
  - Aneurysm [Unknown]
  - Product dose omission issue [Unknown]
  - Cyst [Unknown]

NARRATIVE: CASE EVENT DATE: 202105
